FAERS Safety Report 10257748 (Version 1)
Quarter: 2014Q2

REPORT INFORMATION
  Report Type: Spontaneous
  Country: US (occurrence: None)
  Receive Date: 20140623
  Receipt Date: 20140623
  Transmission Date: 20141212
  Serious: No
  Sender: FDA-Public Use
  Company Number: None

PATIENT
  Age: 83 Year
  Sex: Female
  Weight: 51.71 kg

DRUGS (1)
  1. PROLIA [Suspect]
     Indication: OSTEOPOROSIS
     Dosage: 1 INJECTION, INTO A VEIN
     Dates: start: 20140512, end: 20140512

REACTIONS (9)
  - Pain [None]
  - Headache [None]
  - Insomnia [None]
  - Pollakiuria [None]
  - Dyspepsia [None]
  - Gastrooesophageal reflux disease [None]
  - Dysphagia [None]
  - Chest pain [None]
  - Eating disorder [None]
